FAERS Safety Report 6255362-X (Version None)
Quarter: 2009Q3

REPORT INFORMATION
  Report Type: 
  Country: None (occurrence: None)
  Receive Date: 20090702
  Receipt Date: 20090629
  Transmission Date: 20100115
  Serious: Yes (Hospitalization)
  Sender: FDA-Public Use
  Company Number: FR-EISAI INC.-E2020-04828-SPO-FR

PATIENT
  Sex: Male

DRUGS (10)
  1. ARICEPT [Suspect]
     Indication: DRUG USE FOR UNKNOWN INDICATION
     Dosage: UNKNOWN
     Route: 048
     Dates: end: 20090603
  2. NOROXIN [Suspect]
     Dosage: UNKNOWN
     Route: 048
     Dates: start: 20090528, end: 20090602
  3. LASIX [Suspect]
     Indication: DRUG USE FOR UNKNOWN INDICATION
     Dosage: UNKNOWN
     Route: 048
     Dates: end: 20090603
  4. PREVISCAN [Suspect]
     Indication: DRUG USE FOR UNKNOWN INDICATION
     Dosage: UNKNOWN
     Route: 048
     Dates: end: 20090604
  5. LANZOR [Suspect]
     Indication: DRUG USE FOR UNKNOWN INDICATION
     Dosage: UNKNOWN
     Route: 048
     Dates: end: 20090603
  6. LIPANOR [Suspect]
     Indication: DRUG USE FOR UNKNOWN INDICATION
     Dosage: UNKNOWN
     Route: 065
     Dates: end: 20090603
  7. PERINDOPRIL ERBUMINE [Suspect]
     Indication: DRUG USE FOR UNKNOWN INDICATION
     Dosage: UNKNOWN
     Route: 048
     Dates: end: 20090603
  8. DIAMICRON [Suspect]
     Indication: DRUG USE FOR UNKNOWN INDICATION
     Dosage: UNKNOWN
     Route: 048
     Dates: end: 20090604
  9. CARDENSIEL [Suspect]
     Indication: DRUG USE FOR UNKNOWN INDICATION
     Dosage: UNKNOWN
     Route: 048
  10. CORDARONE [Suspect]
     Indication: DRUG USE FOR UNKNOWN INDICATION
     Dosage: UNKNOWN
     Route: 048

REACTIONS (2)
  - AGRANULOCYTOSIS [None]
  - LEUKOPENIA [None]
